FAERS Safety Report 5691171-8 (Version None)
Quarter: 2008Q2

REPORT INFORMATION
  Report Type: 
  Country: None (occurrence: None)
  Receive Date: 20080401
  Receipt Date: 20080401
  Transmission Date: 20081010
  Serious: Yes (Other)
  Sender: FDA-Public Use
  Company Number: None

PATIENT
  Sex: Female
  Weight: 23.587 kg

DRUGS (2)
  1. SINGULAIR [Suspect]
     Indication: ASTHMA
     Dosage: 5MG  1 DAY AT BEDTIME PO
     Route: 048
     Dates: start: 20030101, end: 20080330
  2. SINGULAIR [Suspect]
     Indication: MULTIPLE ALLERGIES
     Dosage: 5MG  1 DAY AT BEDTIME PO
     Route: 048
     Dates: start: 20030101, end: 20080330

REACTIONS (12)
  - ABNORMAL BEHAVIOUR [None]
  - AGGRESSION [None]
  - ANGER [None]
  - ATTENTION DEFICIT/HYPERACTIVITY DISORDER [None]
  - BIPOLAR DISORDER [None]
  - DISTURBANCE IN ATTENTION [None]
  - HALLUCINATION [None]
  - MOOD SWINGS [None]
  - NIGHTMARE [None]
  - OPPOSITIONAL DEFIANT DISORDER [None]
  - SOCIAL PROBLEM [None]
  - SUICIDAL IDEATION [None]
